FAERS Safety Report 20322885 (Version 1)
Quarter: 2022Q1

REPORT INFORMATION
  Report Type: Spontaneous
  Country: FR (occurrence: FR)
  Receive Date: 20220111
  Receipt Date: 20220111
  Transmission Date: 20220423
  Serious: Yes (Other)
  Sender: FDA-Public Use
  Company Number: None

PATIENT
  Age: 18 Year
  Sex: Female

DRUGS (2)
  1. TRAMADOL [Suspect]
     Active Substance: TRAMADOL
     Dosage: 6 TABLETS DECLARED,CHLORHYDRATE DE TRAMADOL,UNIT DOSE:50MG
     Route: 048
     Dates: start: 20210928, end: 20210928
  2. TRAMADOL [Suspect]
     Active Substance: TRAMADOL
     Dosage: UP TO 10 CP / D
     Route: 048
     Dates: start: 2020, end: 20211001

REACTIONS (2)
  - Drug dependence [Not Recovered/Not Resolved]
  - Poisoning deliberate [Recovered/Resolved]

NARRATIVE: CASE EVENT DATE: 20200101
